FAERS Safety Report 25717032 (Version 2)
Quarter: 2025Q3

REPORT INFORMATION
  Report Type: Spontaneous
  Country: US (occurrence: US)
  Receive Date: 20250822
  Receipt Date: 20250915
  Transmission Date: 20251020
  Serious: No
  Sender: SANOFI AVENTIS
  Company Number: US-SA-2025SA249023

PATIENT
  Age: 74 Year
  Sex: Female

DRUGS (9)
  1. DUPIXENT [Suspect]
     Active Substance: DUPILUMAB
     Indication: Dermatitis atopic
     Route: 058
     Dates: start: 20250114
  2. LEVOTHYROXINE [Concomitant]
     Active Substance: LEVOTHYROXINE
  3. DESONIDE [Concomitant]
     Active Substance: DESONIDE
  4. CALCIUM [Concomitant]
     Active Substance: CALCIUM
  5. EVENITY [Concomitant]
     Active Substance: ROMOSOZUMAB-AQQG
  6. TRIAMCINOLONE [Concomitant]
     Active Substance: TRIAMCINOLONE
  7. MUPIROCIN [Concomitant]
     Active Substance: MUPIROCIN
  8. CLOBETASOL [Concomitant]
     Active Substance: CLOBETASOL
  9. MENTHOL [Concomitant]
     Active Substance: MENTHOL

REACTIONS (1)
  - Eczema [Unknown]

NARRATIVE: CASE EVENT DATE: 20250815
